FAERS Safety Report 4716030-6 (Version None)
Quarter: 2005Q3

REPORT INFORMATION
  Report Type: 
  Country: None (occurrence: None)
  Receive Date: 20050718
  Receipt Date: 20050705
  Transmission Date: 20060218
  Serious: Yes (Death, Hospitalization)
  Sender: FDA-Public Use
  Company Number: 200516156GDDC

PATIENT
  Age: 60 Year
  Sex: Male
  Weight: 106 kg

DRUGS (2)
  1. DOCETAXEL [Suspect]
     Indication: NON-SMALL CELL LUNG CANCER
     Dosage: DOSE: 450 MG TOTAL DOSE ADMINISTERED THIS COURSE
     Route: 042
     Dates: start: 20050602, end: 20050602
  2. RADIATION THERAPY [Suspect]
     Indication: NON-SMALL CELL LUNG CANCER
     Dosage: DOSE: EXTERNAL BEAM, 3D (61 GY)
     Dates: end: 20050317

REACTIONS (5)
  - DYSPNOEA [None]
  - MULTI-ORGAN FAILURE [None]
  - PNEUMONITIS [None]
  - RADIATION PNEUMONITIS [None]
  - SEPSIS [None]
